FAERS Safety Report 4478808-6 (Version None)
Quarter: 2004Q3

REPORT INFORMATION
  Report Type: 
  Country: None (occurrence: None)
  Receive Date: 20040923
  Receipt Date: 20040721
  Transmission Date: 20050211
  Serious: No
  Sender: FDA-Public Use
  Company Number: USA040773280

PATIENT
  Age: 54 Year
  Sex: Female

DRUGS (4)
  1. FORTEO [Suspect]
     Indication: OSTEOPOROSIS
     Dates: start: 20030801
  2. LEXAPRO [Concomitant]
  3. CELEBREX [Concomitant]
  4. CALCIUM W/VITAMIN D NOS [Concomitant]

REACTIONS (2)
  - ASTHENIA [None]
  - BLOOD CALCIUM INCREASED [None]
